FAERS Safety Report 13577887 (Version 3)
Quarter: 2017Q3

REPORT INFORMATION
  Report Type: Spontaneous
  Country: JP (occurrence: JP)
  Receive Date: 20170524
  Receipt Date: 20170724
  Transmission Date: 20171127
  Serious: Yes (Hospitalization)
  Sender: FDA-Public Use
  Company Number: PHJP2017JP016794

PATIENT

DRUGS (1)
  1. TASIGNA [Suspect]
     Active Substance: NILOTINIB
     Indication: CHRONIC MYELOID LEUKAEMIA
     Dosage: 150 MG, BID
     Route: 048
     Dates: start: 201611

REACTIONS (13)
  - Dyspnoea [Unknown]
  - Oedema peripheral [Unknown]
  - Heart sounds abnormal [Unknown]
  - Decreased appetite [Unknown]
  - Arteriospasm coronary [Recovering/Resolving]
  - Jugular vein distension [Unknown]
  - Fatigue [Unknown]
  - Orthopnoea [Unknown]
  - Chest discomfort [Unknown]
  - Pulmonary oedema [Unknown]
  - Concomitant disease aggravated [Recovering/Resolving]
  - Cardiac failure [Recovering/Resolving]
  - Diastolic dysfunction [Unknown]

NARRATIVE: CASE EVENT DATE: 201705
